FAERS Safety Report 7211421-6 (Version None)
Quarter: 2011Q1

REPORT INFORMATION
  Report Type: 
  Country: None (occurrence: None)
  Receive Date: 20110105
  Receipt Date: 20101224
  Transmission Date: 20110831
  Serious: Yes (Death, Hospitalization)
  Sender: FDA-Public Use
  Company Number: JP-AMGEN-JPNCT2010005383

PATIENT

DRUGS (10)
  1. ENBREL [Suspect]
     Indication: RHEUMATOID ARTHRITIS
     Dosage: 25 MG, 2 TIMES/WK
     Route: 058
     Dates: start: 20050816, end: 20100916
  2. TAKEPRON [Concomitant]
     Dosage: 15 MG, 1X/DAY
     Route: 048
     Dates: start: 20050614, end: 20050919
  3. MOVER [Concomitant]
     Indication: RHEUMATOID ARTHRITIS
     Dosage: 300 MG, 1X/DAY
     Route: 048
     Dates: start: 20050629, end: 20050919
  4. PREDONINE [Concomitant]
     Dosage: 10 MG, 1X/DAY
     Route: 048
     Dates: start: 20050701, end: 20050815
  5. ENBREL [Suspect]
     Dosage: 25 MG, 2X/WEEK
     Route: 058
     Dates: start: 20050816, end: 20050916
  6. PREDONINE [Concomitant]
     Dosage: 5 MG, 1X/DAY
     Route: 048
     Dates: start: 20050501, end: 20050701
  7. PREDONINE [Concomitant]
     Dosage: 5 MG 1 TIMES PER 1 WK
     Route: 048
     Dates: start: 20050816, end: 20050919
  8. ISCOTIN [Concomitant]
     Indication: ANTIBIOTIC PROPHYLAXIS
     Dosage: 300 MG, 1X/DAY
     Route: 048
     Dates: start: 20050816, end: 20050919
  9. GLIMICRON [Concomitant]
     Dosage: 40 MG, 1X/DAY
     Route: 048
     Dates: start: 20050614, end: 20050919
  10. VOLTAREN - SLOW RELEASE ^CIBA-GEIGY^ [Concomitant]
     Dosage: 75 MG, 1X/DAY
     Route: 048
     Dates: start: 20050629, end: 20050919

REACTIONS (2)
  - RESPIRATORY FAILURE [None]
  - PNEUMOCYSTIS JIROVECI PNEUMONIA [None]
